FAERS Safety Report 6192065-4 (Version None)
Quarter: 2009Q2

REPORT INFORMATION
  Report Type: 
  Country: None (occurrence: None)
  Receive Date: 20090515
  Receipt Date: 20090507
  Transmission Date: 20091009
  Serious: Yes (Hospitalization)
  Sender: FDA-Public Use
  Company Number: US-SANOFI-SYNTHELABO-F01200900443

PATIENT
  Sex: Female

DRUGS (12)
  1. PROCHLORPERAZINE [Concomitant]
     Dosage: UNK
     Route: 065
  2. POTASSIUM CHLORIDE [Concomitant]
     Dosage: UNK
     Route: 065
  3. ZOFRAN [Concomitant]
     Dosage: UNK
     Route: 065
  4. PRILOSEC [Concomitant]
     Dosage: UNK
     Route: 065
  5. ZETIA [Concomitant]
     Dosage: UNK
     Route: 065
  6. TENORMIN [Concomitant]
     Dosage: UNK
     Route: 065
  7. GEMCITABINE [Suspect]
     Dosage: UNK
     Route: 065
  8. PRESTIM [Concomitant]
     Dosage: UNK
     Route: 065
  9. RADIATION THERAPY [Suspect]
     Dates: start: 20090309
  10. OXALIPLATIN [Suspect]
     Indication: DRUG USE FOR UNKNOWN INDICATION
     Dosage: UNK
     Route: 041
  11. DILAUDID [Concomitant]
     Dosage: UNK
     Route: 065
  12. ERLOTINIB [Suspect]
     Indication: PANCREATIC CARCINOMA
     Dosage: UNK
     Route: 048

REACTIONS (1)
  - BILE DUCT OBSTRUCTION [None]
